FAERS Safety Report 14256479 (Version 2)
Quarter: 2018Q1

REPORT INFORMATION
  Report Type: Spontaneous
  Country: US (occurrence: US)
  Receive Date: 20171206
  Receipt Date: 20180301
  Transmission Date: 20180508
  Serious: No
  Sender: FDA-Public Use
  Company Number: US-PFIZER INC-2017518037

PATIENT
  Age: 77 Year
  Sex: Female
  Weight: 91 kg

DRUGS (2)
  1. HYDROXYZINE PAMOATE. [Suspect]
     Active Substance: HYDROXYZINE PAMOATE
     Indication: RASH
     Dosage: 25 MG, UNK
  2. HYDROXYZINE PAMOATE. [Suspect]
     Active Substance: HYDROXYZINE PAMOATE
     Indication: PRURITUS
     Dosage: 50 MG, UNK

REACTIONS (1)
  - Drug ineffective [Unknown]
